FAERS Safety Report 11929996 (Version 1)
Quarter: 2016Q1

REPORT INFORMATION
  Report Type: Spontaneous
  Country: US (occurrence: None)
  Receive Date: 20160119
  Receipt Date: 20160119
  Transmission Date: 20160526
  Serious: No
  Sender: FDA-Public Use
  Company Number: None

PATIENT
  Age: 87 Year
  Sex: Male

DRUGS (1)
  1. LUPRON DEPOT [Suspect]
     Active Substance: LEUPROLIDE ACETATE
     Indication: PROSTATE CANCER
     Route: 030
     Dates: start: 20151216, end: 20151216

REACTIONS (4)
  - Nasal congestion [None]
  - Vertigo [None]
  - Pollakiuria [None]
  - Poor quality sleep [None]

NARRATIVE: CASE EVENT DATE: 20151216
